FAERS Safety Report 6851186-0 (Version None)
Quarter: 2010Q3

REPORT INFORMATION
  Report Type: 
  Country: None (occurrence: None)
  Receive Date: 20100716
  Receipt Date: 20100707
  Transmission Date: 20110219
  Serious: Yes (Hospitalization, Other)
  Sender: FDA-Public Use
  Company Number: US-AMGEN-KDL422994

PATIENT
  Sex: Female

DRUGS (1)
  1. ENBREL [Suspect]
     Indication: JUVENILE ARTHRITIS
     Route: 058
     Dates: start: 20021112

REACTIONS (14)
  - ASTHENIA [None]
  - BACK PAIN [None]
  - CHEST DISCOMFORT [None]
  - DYSKINESIA [None]
  - DYSPNOEA [None]
  - FEELING JITTERY [None]
  - GINGIVAL PAIN [None]
  - HYPERSENSITIVITY [None]
  - JOINT DESTRUCTION [None]
  - LETHARGY [None]
  - MUSCULOSKELETAL PAIN [None]
  - NECK PAIN [None]
  - RASH [None]
  - RESTLESSNESS [None]
